FAERS Safety Report 12052796 (Version 1)
Quarter: 2016Q1

REPORT INFORMATION
  Report Type: Spontaneous
  Country: CA (occurrence: CA)
  Receive Date: 20160209
  Receipt Date: 20160209
  Transmission Date: 20160526
  Serious: Yes (Death, Other)
  Sender: FDA-Public Use
  Company Number: CA-PFIZER INC-2016067095

PATIENT
  Age: 75 Year
  Sex: Male

DRUGS (3)
  1. HEPARIN SODIUM. [Suspect]
     Active Substance: HEPARIN SODIUM
     Indication: CARDIAC DISORDER
     Dosage: UNK
     Route: 042
  2. HEPARIN SODIUM. [Suspect]
     Active Substance: HEPARIN SODIUM
     Dosage: UNK
     Route: 042
  3. FRAGMIN [Suspect]
     Active Substance: DALTEPARIN SODIUM
     Indication: PROPHYLAXIS
     Dosage: UNK
     Route: 058

REACTIONS (9)
  - Dysuria [Fatal]
  - Penile haemorrhage [Fatal]
  - Scrotal pain [Fatal]
  - Penile necrosis [Fatal]
  - Genital swelling [Fatal]
  - Penile erythema [Fatal]
  - Cardiac failure [Fatal]
  - Heparin-induced thrombocytopenia [Fatal]
  - Renal failure [Fatal]
